FAERS Safety Report 8585773-9 (Version None)
Quarter: 2012Q3

REPORT INFORMATION
  Report Type: 
  Country: None (occurrence: None)
  Receive Date: 20120802
  Receipt Date: 20120802
  Transmission Date: 20120928
  Serious: No
  Sender: FDA-Public Use
  Company Number: None

PATIENT
  Age: 64 Year
  Sex: Female

DRUGS (2)
  1. DEXAMETHASONE [Suspect]
  2. VELCADE [Suspect]

REACTIONS (2)
  - NEUROPATHY PERIPHERAL [None]
  - INSOMNIA [None]
